FAERS Safety Report 9270561 (Version 1)
Quarter: 2013Q2

REPORT INFORMATION
  Report Type: Spontaneous
  Country: IT (occurrence: IT)
  Receive Date: 20130503
  Receipt Date: 20130503
  Transmission Date: 20140414
  Serious: Yes (Hospitalization)
  Sender: FDA-Public Use
  Company Number: PHHY2013IT041560

PATIENT
  Sex: Female

DRUGS (9)
  1. TOLEP [Suspect]
     Dosage: 300 MG, DAILY
     Route: 048
     Dates: start: 19950206, end: 20130318
  2. LAMOTRIGINE [Suspect]
     Indication: EPILEPSY
     Dosage: 100 MG, DAILY
     Route: 048
     Dates: start: 19950103, end: 20130409
  3. CARBOLITHIUM [Suspect]
     Dosage: 300 MG, DAILY
     Route: 048
     Dates: start: 20130313, end: 20130319
  4. DOMINANS [Suspect]
     Dosage: 10.5 MG, DAILY
     Route: 048
     Dates: start: 20130118, end: 20130321
  5. SERENASE [Suspect]
     Dosage: 5 MG, TOTAL
     Route: 030
     Dates: start: 20130319, end: 20130319
  6. XERISTAR [Suspect]
     Dosage: 60 MG, DAILY
     Route: 048
     Dates: start: 20130313, end: 20130317
  7. CIPRALEX [Suspect]
     Dosage: 10 MG, DAILY
     Route: 048
     Dates: start: 20130118, end: 20130319
  8. LARGACTIL [Suspect]
     Dosage: 50 MG, TOTAL
     Route: 030
     Dates: start: 20130319, end: 20130319
  9. REMERON [Suspect]
     Dosage: 30 MG, DAILY
     Route: 048
     Dates: start: 20130103, end: 20130313

REACTIONS (9)
  - Psychomotor hyperactivity [Recovered/Resolved]
  - Musculoskeletal stiffness [Recovered/Resolved]
  - Myoclonus [Recovered/Resolved]
  - Hyperpyrexia [Recovered/Resolved]
  - Coma [Recovered/Resolved]
  - Rhabdomyolysis [Recovered/Resolved]
  - Confusional state [Recovered/Resolved]
  - Vertigo [Recovered/Resolved]
  - Tremor [Recovered/Resolved]
